FAERS Safety Report 6305630-8 (Version None)
Quarter: 2009Q3

REPORT INFORMATION
  Report Type: 
  Country: None (occurrence: None)
  Receive Date: 20090806
  Receipt Date: 20090730
  Transmission Date: 20100115
  Serious: Yes (Other)
  Sender: FDA-Public Use
  Company Number: GXKR2009GB08675

PATIENT
  Age: 87 Year
  Sex: Female

DRUGS (5)
  1. OMEPRAZOLE [Suspect]
     Dosage: ORAL
     Route: 048
     Dates: start: 20070701, end: 20080822
  2. CARBIMAZOLE (CARBIMAZOLE) [Suspect]
     Indication: HYPERTHYROIDISM
     Dosage: 5 MG, ORAL
     Route: 048
     Dates: start: 19970101, end: 20080822
  3. ASPIRIN [Concomitant]
  4. LACIDIPINE (LACIDIPINE) [Concomitant]
  5. LISINOPRIL [Concomitant]

REACTIONS (4)
  - EAR HAEMORRHAGE [None]
  - FALL [None]
  - LOSS OF CONSCIOUSNESS [None]
  - RASH GENERALISED [None]
